FAERS Safety Report 7896639-1 (Version None)
Quarter: 2011Q4

REPORT INFORMATION
  Report Type: 
  Country: None (occurrence: None)
  Receive Date: 20111107
  Receipt Date: 20091113
  Transmission Date: 20120403
  Serious: No
  Sender: FDA-Public Use
  Company Number: US-BIOGENIDEC-2009BI037372

PATIENT
  Sex: Female

DRUGS (4)
  1. AVONEX [Concomitant]
     Route: 030
     Dates: start: 19961201
  2. AVONEX [Concomitant]
     Indication: MULTIPLE SCLEROSIS
     Route: 030
     Dates: start: 19970101
  3. TYSABRI [Suspect]
     Indication: MULTIPLE SCLEROSIS
     Route: 042
  4. TYSABRI [Suspect]
     Route: 042
     Dates: start: 20071126

REACTIONS (16)
  - APHASIA [None]
  - HYPOAESTHESIA [None]
  - MUSCULAR WEAKNESS [None]
  - DRUG EFFECT DECREASED [None]
  - ASTHENIA [None]
  - HEADACHE [None]
  - FALL [None]
  - PAIN IN EXTREMITY [None]
  - BALANCE DISORDER [None]
  - AMNESIA [None]
  - POOR VENOUS ACCESS [None]
  - FATIGUE [None]
  - UPPER RESPIRATORY TRACT INFECTION [None]
  - GAIT DISTURBANCE [None]
  - ARTHRALGIA [None]
  - MEMORY IMPAIRMENT [None]
